FAERS Safety Report 24696030 (Version 2)
Quarter: 2024Q4

REPORT INFORMATION
  Report Type: Report from Study
  Country: MX (occurrence: MX)
  Receive Date: 20241204
  Receipt Date: 20241224
  Transmission Date: 20250115
  Serious: Yes (Other)
  Sender: REGENERON
  Company Number: MX-BAYER-2024A171663

PATIENT
  Age: 65 Year
  Sex: Female

DRUGS (1)
  1. EYLEA [Suspect]
     Active Substance: AFLIBERCEPT
     Indication: Diabetic retinal oedema
     Dosage: 50 MICROLITRES EVERY 28 DAYS; 40 MG/ML
     Dates: start: 20221212, end: 20240503

REACTIONS (1)
  - Cataract operation [Recovering/Resolving]
